FAERS Safety Report 5768416-9 (Version None)
Quarter: 2008Q2

REPORT INFORMATION
  Report Type: 
  Country: None (occurrence: None)
  Receive Date: 20080612
  Receipt Date: 20080303
  Transmission Date: 20081010
  Serious: No
  Sender: FDA-Public Use
  Company Number: US-ABBOTT-08P-163-0440865-00

PATIENT
  Sex: Female
  Weight: 103.51 kg

DRUGS (10)
  1. HUMIRA [Suspect]
     Indication: CROHN'S DISEASE
     Route: 058
     Dates: start: 20071112
  2. ESTROPIPATE [Concomitant]
     Indication: DRUG USE FOR UNKNOWN INDICATION
     Route: 042
  3. METHOTREXATE [Concomitant]
     Indication: CROHN'S DISEASE
  4. LOTREL [Concomitant]
     Indication: HYPERTENSION
     Route: 048
  5. DULOXETINE HYDROCHLORIDE [Concomitant]
     Indication: DRUG USE FOR UNKNOWN INDICATION
     Route: 048
  6. PREGABALIN [Concomitant]
     Indication: FIBROMYALGIA
     Route: 048
  7. PANTOPRAZOLE [Concomitant]
     Indication: DRUG USE FOR UNKNOWN INDICATION
     Route: 048
  8. DICLOFENAC [Concomitant]
     Indication: CROHN'S DISEASE
     Route: 048
  9. HYDROCODONE [Concomitant]
     Indication: FIBROMYALGIA
     Route: 048
  10. TRAMADOL HCL [Concomitant]
     Indication: FIBROMYALGIA
     Route: 048

REACTIONS (3)
  - INFLUENZA [None]
  - INJECTION SITE BRUISING [None]
  - PAIN [None]
